FAERS Safety Report 25210053 (Version 1)
Quarter: 2025Q2

REPORT INFORMATION
  Report Type: Spontaneous
  Country: TR (occurrence: TR)
  Receive Date: 20250417
  Receipt Date: 20250417
  Transmission Date: 20250717
  Serious: Yes (Other)
  Sender: MERCK SHARP AND DOHME
  Company Number: TR-009507513-2275539

PATIENT
  Age: 52 Year
  Sex: Male

DRUGS (3)
  1. PEMBROLIZUMAB [Suspect]
     Active Substance: PEMBROLIZUMAB
     Indication: Anal cancer
  2. CISPLATIN [Suspect]
     Active Substance: CISPLATIN
     Indication: Anal cancer
  3. PEMETREXED [Suspect]
     Active Substance: PEMETREXED
     Indication: Anal cancer

REACTIONS (5)
  - Neutropenia [Recovered/Resolved]
  - Hypothyroidism [Recovered/Resolved]
  - Nausea [Recovered/Resolved]
  - Dermatitis [Recovered/Resolved]
  - Hypothyroidism [Recovered/Resolved]
